FAERS Safety Report 17303564 (Version 1)
Quarter: 2020Q1

REPORT INFORMATION
  Report Type: Spontaneous
  Country: CA (occurrence: CA)
  Receive Date: 20200122
  Receipt Date: 20200122
  Transmission Date: 20200409
  Serious: Yes (Hospitalization)
  Sender: FDA-Public Use
  Company Number: CA-ACTELION-A-NJ2018-176005

PATIENT
  Age: 92 Year
  Sex: Female

DRUGS (9)
  1. SPIRIVA [Concomitant]
     Active Substance: TIOTROPIUM BROMIDE MONOHYDRATE
  2. METOPROLOL. [Concomitant]
     Active Substance: METOPROLOL
  3. PROZAC [Concomitant]
     Active Substance: FLUOXETINE HYDROCHLORIDE
  4. LYRICA [Concomitant]
     Active Substance: PREGABALIN
  5. OPSUMIT [Suspect]
     Active Substance: MACITENTAN
     Indication: PULMONARY ARTERIAL HYPERTENSION
     Dosage: 10 MG, QD
     Route: 048
     Dates: start: 20141020
  6. VENTOLIN [Concomitant]
     Active Substance: ALBUTEROL SULFATE
  7. LASIX [Concomitant]
     Active Substance: FUROSEMIDE
  8. ADCIRCA [Concomitant]
     Active Substance: TADALAFIL
  9. ASA [Concomitant]
     Active Substance: ASPIRIN

REACTIONS (3)
  - Hospitalisation [Unknown]
  - Musculoskeletal discomfort [Not Recovered/Not Resolved]
  - Influenza [Not Recovered/Not Resolved]

NARRATIVE: CASE EVENT DATE: 20180704
